FAERS Safety Report 8618635-9 (Version None)
Quarter: 2012Q3

REPORT INFORMATION
  Report Type: 
  Country: None (occurrence: None)
  Receive Date: 20120814
  Receipt Date: 20120814
  Transmission Date: 20120928
  Serious: Yes (Hospitalization, Other)
  Sender: FDA-Public Use
  Company Number: None

PATIENT
  Age: 19 Year
  Sex: Male
  Weight: 47 kg

DRUGS (2)
  1. ROBITUSSIN DM PFIZER [Suspect]
     Indication: COUGH
     Dosage: 1 TIME PO
     Route: 048
     Dates: start: 20120811, end: 20120811
  2. ROBITUSSIN DM PFIZER [Suspect]
     Indication: NASOPHARYNGITIS
     Dosage: 1 TIME PO
     Route: 048
     Dates: start: 20120811, end: 20120811

REACTIONS (7)
  - SOMNOLENCE [None]
  - MUSCLE SPASMS [None]
  - VISION BLURRED [None]
  - EPILEPSY [None]
  - SPEECH DISORDER [None]
  - NAUSEA [None]
  - VOMITING [None]
